FAERS Safety Report 5037804-0 (Version None)
Quarter: 2006Q2

REPORT INFORMATION
  Report Type: 
  Country: None (occurrence: None)
  Receive Date: 20060602
  Receipt Date: 20060501
  Transmission Date: 20061013
  Serious: Yes (Other)
  Sender: FDA-Public Use
  Company Number: US200605000298

PATIENT
  Age: 64 Year
  Sex: Male

DRUGS (1)
  1. ALIMTA [Suspect]
     Indication: LUNG NEOPLASM MALIGNANT
     Dates: start: 20040923, end: 20060331

REACTIONS (1)
  - MALIGNANT NEOPLASM PROGRESSION [None]
